FAERS Safety Report 15963992 (Version 2)
Quarter: 2019Q1

REPORT INFORMATION
  Report Type: Report from Study
  Country: AR (occurrence: AR)
  Receive Date: 20190214
  Receipt Date: 20190218
  Transmission Date: 20190417
  Serious: Yes (Death, Hospitalization, Other)
  Sender: FDA-Public Use
  Company Number: PHHY2019AR033884

PATIENT
  Sex: Male

DRUGS (3)
  1. TAFINLAR [Suspect]
     Active Substance: DABRAFENIB MESYLATE
     Indication: METASTATIC MALIGNANT MELANOMA
     Dosage: 300 MG, QD
     Route: 065
     Dates: start: 20170131
  2. ATENOLOL. [Concomitant]
     Active Substance: ATENOLOL
     Indication: PRODUCT USED FOR UNKNOWN INDICATION
     Route: 065
  3. MEKINIST [Suspect]
     Active Substance: TRAMETINIB DIMETHYL SULFOXIDE
     Indication: METASTATIC MALIGNANT MELANOMA
     Dosage: 2 MG, QD
     Route: 065
     Dates: start: 20170131

REACTIONS (13)
  - Pulmonary congestion [Fatal]
  - Diarrhoea [Unknown]
  - Gastric disorder [Unknown]
  - Pyrexia [Unknown]
  - Delusion [Unknown]
  - Anal incontinence [Unknown]
  - General physical health deterioration [Unknown]
  - Nodule [Unknown]
  - Metastases to central nervous system [Fatal]
  - Lung disorder [Fatal]
  - Memory impairment [Unknown]
  - Dehydration [Unknown]
  - Speech disorder [Unknown]
